FAERS Safety Report 10269587 (Version 1)
Quarter: 2014Q2

REPORT INFORMATION
  Report Type: Spontaneous
  Country: US (occurrence: None)
  Receive Date: 20140625
  Receipt Date: 20140625
  Transmission Date: 20141212
  Serious: Yes (Hospitalization)
  Sender: FDA-Public Use
  Company Number: UNT-2014-002480

PATIENT
  Age: 83 Year
  Sex: Female
  Weight: 56.2 kg

DRUGS (1)
  1. REMODULIN (TREPROSTINIL SODIUM) INJECTION, 1MG/ML [Suspect]
     Indication: PULMONARY ARTERIAL HYPERTENSION
     Route: 041
     Dates: start: 20130423

REACTIONS (3)
  - Fatigue [None]
  - Injection site swelling [None]
  - Injection site erythema [None]
